FAERS Safety Report 19073424 (Version 1)
Quarter: 2021Q1

REPORT INFORMATION
  Report Type: Spontaneous
  Country: US (occurrence: US)
  Receive Date: 20210330
  Receipt Date: 20210330
  Transmission Date: 20210420
  Serious: No
  Sender: FDA-Public Use
  Company Number: US-MYLANLABS-2021M1017759

PATIENT
  Sex: Female
  Weight: 105 kg

DRUGS (1)
  1. EPIPEN [Suspect]
     Active Substance: EPINEPHRINE
     Indication: HYPERSENSITIVITY
     Dosage: UNK UNK, PRN
     Route: 058

REACTIONS (1)
  - Product packaging quantity issue [Unknown]
